FAERS Safety Report 4426444-X (Version None)
Quarter: 2004Q3

REPORT INFORMATION
  Report Type: 
  Country: None (occurrence: None)
  Receive Date: 20040815
  Receipt Date: 20040715
  Transmission Date: 20050211
  Serious: Yes (Life-Threatening)
  Sender: FDA-Public Use
  Company Number: US-MERCK-0407USA01318

PATIENT
  Age: 35 Year
  Sex: Female
  Weight: 71 kg

DRUGS (3)
  1. ADVAIR [Concomitant]
     Indication: ASTHMA
     Route: 055
     Dates: start: 20040328
  2. SINGULAIR [Concomitant]
     Indication: ASTHMA
     Route: 048
     Dates: start: 20040328
  3. ZOCOR [Suspect]
     Indication: HYPERCHOLESTEROLAEMIA
     Route: 048
     Dates: start: 20040618, end: 20040701

REACTIONS (5)
  - AGITATION [None]
  - ANXIETY [None]
  - CRYING [None]
  - MOOD SWINGS [None]
  - SUICIDAL IDEATION [None]
